FAERS Safety Report 8443817-9 (Version None)
Quarter: 2012Q2

REPORT INFORMATION
  Report Type: 
  Country: None (occurrence: None)
  Receive Date: 20120618
  Receipt Date: 20120606
  Transmission Date: 20120825
  Serious: Yes (Hospitalization)
  Sender: FDA-Public Use
  Company Number: US-SANOFI-AVENTIS-2012SA040961

PATIENT
  Age: 49 Year
  Sex: Male
  Weight: 74.84 kg

DRUGS (3)
  1. LANTUS [Suspect]
     Indication: BLOOD GLUCOSE
     Dosage: DOSE:35 UNIT(S)
     Route: 058
     Dates: start: 20100101
  2. NEURONTIN [Suspect]
     Route: 065
     Dates: start: 20100101
  3. NOVOLOG [Suspect]
     Indication: BLOOD GLUCOSE
     Dosage: DOSE:8 UNIT(S)
     Route: 058
     Dates: start: 20100101

REACTIONS (4)
  - BLOOD GLUCOSE INCREASED [None]
  - EXPIRED DRUG ADMINISTERED [None]
  - PAIN [None]
  - BLOOD PRESSURE ABNORMAL [None]
